FAERS Safety Report 7301691-8 (Version None)
Quarter: 2011Q1

REPORT INFORMATION
  Report Type: 
  Country: None (occurrence: None)
  Receive Date: 20110218
  Receipt Date: 20110208
  Transmission Date: 20110831
  Serious: Yes (Hospitalization)
  Sender: FDA-Public Use
  Company Number: NO-SANOFI-AVENTIS-2011SA008059

PATIENT
  Age: 71 Year
  Sex: Female

DRUGS (5)
  1. MULTAQ [Suspect]
     Indication: ATRIAL FIBRILLATION
     Route: 048
     Dates: start: 20101101, end: 20110104
  2. CALCIGRAN [Concomitant]
     Indication: OSTEOPOROSIS
     Route: 048
  3. VITAMIN B-12 [Concomitant]
     Indication: PERNICIOUS ANAEMIA
     Route: 030
  4. ATENOLOL [Concomitant]
     Indication: ATRIAL FIBRILLATION
     Route: 048
  5. ALBYL-E [Concomitant]
     Indication: ATRIAL FIBRILLATION
     Route: 048

REACTIONS (2)
  - NAUSEA [None]
  - WEIGHT DECREASED [None]
